FAERS Safety Report 5915650-0 (Version None)
Quarter: 2008Q4

REPORT INFORMATION
  Report Type: 
  Country: None (occurrence: None)
  Receive Date: 20081010
  Receipt Date: 20080912
  Transmission Date: 20090506
  Serious: Yes (Hospitalization, Other)
  Sender: FDA-Public Use
  Company Number: AU-JNJCH-2008024095

PATIENT
  Age: 17 Year
  Sex: Male

DRUGS (1)
  1. ZYRTEC [Suspect]
     Dosage: TEXT:30 DF
     Route: 048
     Dates: start: 20080910, end: 20080910

REACTIONS (5)
  - DIARRHOEA [None]
  - DRY MOUTH [None]
  - HEADACHE [None]
  - OVERDOSE [None]
  - SOMNOLENCE [None]
